FAERS Safety Report 7377435-0 (Version None)
Quarter: 2011Q1

REPORT INFORMATION
  Report Type: 
  Country: None (occurrence: None)
  Receive Date: 20110328
  Receipt Date: 20110314
  Transmission Date: 20110831
  Serious: Yes (Hospitalization)
  Sender: FDA-Public Use
  Company Number: US-JNJFOC-20110306519

PATIENT
  Sex: Female
  Weight: 66.68 kg

DRUGS (4)
  1. PREDNISONE [Concomitant]
     Indication: CROHN'S DISEASE
     Dosage: AS ORDERED IN DECREASING DOSES
     Route: 048
  2. ADDERALL 10 [Concomitant]
     Indication: ATTENTION DEFICIT/HYPERACTIVITY DISORDER
     Route: 048
  3. REMICADE [Suspect]
     Indication: CROHN'S DISEASE
     Route: 042
  4. MERCAPTOPURINE [Concomitant]
     Indication: CROHN'S DISEASE
     Route: 048

REACTIONS (20)
  - FEELING ABNORMAL [None]
  - BONE PAIN [None]
  - HAEMATOCHEZIA [None]
  - URTICARIA [None]
  - NAUSEA [None]
  - COUGH [None]
  - SINUS CONGESTION [None]
  - DIARRHOEA [None]
  - INTESTINAL OBSTRUCTION [None]
  - TONSILLAR DISORDER [None]
  - CROHN'S DISEASE [None]
  - HYPERHIDROSIS [None]
  - ABDOMINAL PAIN [None]
  - DERMATITIS CONTACT [None]
  - ABDOMINAL PAIN UPPER [None]
  - GASTROINTESTINAL SOUNDS ABNORMAL [None]
  - DEHYDRATION [None]
  - VOMITING [None]
  - WEIGHT FLUCTUATION [None]
  - CHILLS [None]
